FAERS Safety Report 6336192-7 (Version None)
Quarter: 2009Q4

REPORT INFORMATION
  Report Type: 
  Country: None (occurrence: None)
  Receive Date: 20090831
  Receipt Date: 20090831
  Transmission Date: 20100525
  Serious: Yes (Other)
  Sender: FDA-Public Use
  Company Number: None

PATIENT
  Age: 83 Year
  Sex: Female
  Weight: 67.1324 kg

DRUGS (2)
  1. VYTORIN [Suspect]
     Indication: BLOOD CHOLESTEROL INCREASED
     Dosage: 1 1X DAILY PO
     Route: 048
     Dates: start: 20061114, end: 20090501
  2. SIMVASTATIN [Suspect]
     Indication: BLOOD CHOLESTEROL INCREASED
     Dosage: 1 1X DAILY PO
     Route: 048
     Dates: start: 20090813, end: 20090816

REACTIONS (2)
  - MUSCLE DISORDER [None]
  - MYALGIA [None]
